FAERS Safety Report 12159767 (Version 4)
Quarter: 2016Q2

REPORT INFORMATION
  Report Type: Report from Study
  Country: US (occurrence: US)
  Receive Date: 20160308
  Receipt Date: 20160510
  Transmission Date: 20160815
  Serious: Yes (Death, Other)
  Sender: FDA-Public Use
  Company Number: US-BAYER-2015-479316

PATIENT
  Age: 68 Year
  Sex: Female
  Weight: 65.76 kg

DRUGS (8)
  1. SELEXIPAG [Concomitant]
     Active Substance: SELEXIPAG
     Dosage: UNK
     Dates: start: 20160422
  2. SELEXIPAG [Concomitant]
     Active Substance: SELEXIPAG
     Dosage: 600 ?G, BID. INCREASE EVERY WEEK BY 200 MCG TWICE DAILY AS TOLERATED TO A MAX. DOSE OF 1600 MCG BID
     Route: 048
     Dates: start: 20160428
  3. ADEMPAS [Suspect]
     Active Substance: RIOCIGUAT
     Indication: PULMONARY ARTERIAL HYPERTENSION
     Dosage: 2.5 MG, TID
     Route: 048
  4. SELEXIPAG [Concomitant]
     Active Substance: SELEXIPAG
     Dosage: UNK
     Dates: start: 2016, end: 201604
  5. ADEMPAS [Suspect]
     Active Substance: RIOCIGUAT
     Indication: PULMONARY ARTERIAL HYPERTENSION
     Dosage: UNK
     Dates: start: 20150220
  6. VENTAVIS [Suspect]
     Active Substance: ILOPROST
     Dosage: UNK
     Dates: end: 2015
  7. ADEMPAS [Suspect]
     Active Substance: RIOCIGUAT
     Indication: PULMONARY ARTERIAL HYPERTENSION
     Dosage: 2.5 MG, TID
     Route: 048
  8. ADEMPAS [Suspect]
     Active Substance: RIOCIGUAT
     Indication: PULMONARY ARTERIAL HYPERTENSION
     Dosage: 2.5 MG, TID
     Route: 048

REACTIONS (7)
  - Death [Fatal]
  - Headache [Recovered/Resolved]
  - Pain in jaw [None]
  - Hepatic cancer [Recovering/Resolving]
  - Nausea [Unknown]
  - Nausea [Recovered/Resolved]
  - Vomiting [Recovered/Resolved]

NARRATIVE: CASE EVENT DATE: 20160422
